FAERS Safety Report 25488379 (Version 1)
Quarter: 2025Q2

REPORT INFORMATION
  Report Type: Spontaneous
  Country: US (occurrence: US)
  Receive Date: 20250627
  Receipt Date: 20250627
  Transmission Date: 20250716
  Serious: Yes (Other)
  Sender: BAYER HEALTHCARE LLC
  Company Number: US-BAYER-2025A085555

PATIENT

DRUGS (1)
  1. BAYER LOW DOSE [Suspect]
     Active Substance: ASPIRIN
     Dosage: 1 DF, OM
     Route: 048

REACTIONS (1)
  - Cerebrovascular accident [Unknown]
